FAERS Safety Report 9070229 (Version 3)
Quarter: 2013Q2

REPORT INFORMATION
  Report Type: Report from Study
  Country: US (occurrence: US)
  Receive Date: 20130129
  Receipt Date: 20130530
  Transmission Date: 20140414
  Serious: Yes (Other)
  Sender: FDA-Public Use
  Company Number: US-US-EMD SERONO, INC.-7189367

PATIENT
  Age: 54 Year
  Sex: Female

DRUGS (2)
  1. REBIF [Suspect]
     Indication: PRODUCT USED FOR UNKNOWN INDICATION
     Route: 058
     Dates: start: 20130103
  2. REBIF [Suspect]
     Route: 058
     Dates: start: 20130219, end: 20130221

REACTIONS (5)
  - Ventricular extrasystoles [Unknown]
  - Coagulation test abnormal [Unknown]
  - Abdominal pain [Unknown]
  - Influenza like illness [Unknown]
  - Pain [Unknown]
